FAERS Safety Report 7226304-5 (Version None)
Quarter: 2011Q1

REPORT INFORMATION
  Report Type: 
  Country: None (occurrence: None)
  Receive Date: 20110114
  Receipt Date: 20110106
  Transmission Date: 20110831
  Serious: Yes (Hospitalization, Other)
  Sender: FDA-Public Use
  Company Number: PHHY2011VE01299

PATIENT
  Sex: Female

DRUGS (3)
  1. ACLASTA [Suspect]
     Indication: OSTEOPOROSIS
     Dosage: 5 MG,ANNUALLY
     Route: 042
     Dates: start: 20091201
  2. EUTHYROX [Concomitant]
     Indication: THYROID DISORDER
     Dosage: ONCE A DAY
     Route: 048
     Dates: start: 20070101
  3. EXFORGE [Concomitant]
     Indication: HYPERTENSION
     Dosage: 1 DF, QD
     Route: 048

REACTIONS (4)
  - BONE DISORDER [None]
  - CARDIAC DISORDER [None]
  - MENISCAL DEGENERATION [None]
  - ARTHRITIS INFECTIVE [None]
